FAERS Safety Report 6185904-4 (Version None)
Quarter: 2009Q2

REPORT INFORMATION
  Report Type: 
  Country: None (occurrence: None)
  Receive Date: 20090511
  Receipt Date: 20090506
  Transmission Date: 20091009
  Serious: Yes (Death)
  Sender: FDA-Public Use
  Company Number: US-B.I. PHARMACEUTICALS,INC./RIDGEFIELD-2009-DE-03671GD

PATIENT
  Age: 50 Day

DRUGS (2)
  1. CLONIDINE [Suspect]
     Indication: DRUG WITHDRAWAL SYNDROME NEONATAL
     Dosage: 6 MCG/KG
     Route: 048
  2. OPIUM [Suspect]
     Indication: DRUG WITHDRAWAL SYNDROME NEONATAL
     Route: 048

REACTIONS (1)
  - MYOCARDITIS [None]
